FAERS Safety Report 5925312-1 (Version None)
Quarter: 2008Q4

REPORT INFORMATION
  Report Type: 
  Country: None (occurrence: None)
  Receive Date: 20081021
  Receipt Date: 20081013
  Transmission Date: 20090506
  Serious: Yes (Hospitalization)
  Sender: FDA-Public Use
  Company Number: DE-ELI_LILLY_AND_COMPANY-DE200810003057

PATIENT
  Sex: Female

DRUGS (1)
  1. CYMBALTA [Suspect]
     Indication: PAIN
     Dosage: 30 MG, UNKNOWN
     Route: 048

REACTIONS (3)
  - ELECTROLYTE IMBALANCE [None]
  - NAUSEA [None]
  - VOMITING [None]
